FAERS Safety Report 8235864-7 (Version None)
Quarter: 2012Q1

REPORT INFORMATION
  Report Type: 
  Country: None (occurrence: None)
  Receive Date: 20120326
  Receipt Date: 20120320
  Transmission Date: 20120608
  Serious: Yes (Other)
  Sender: FDA-Public Use
  Company Number: US-PFIZER INC-2012073140

PATIENT
  Sex: Female

DRUGS (3)
  1. GABAPENTIN [Suspect]
     Dosage: UNK
  2. NEURONTIN [Suspect]
     Dosage: UNK
  3. LYRICA [Suspect]
     Dosage: UNK

REACTIONS (6)
  - AGGRESSION [None]
  - HYPOAESTHESIA [None]
  - SUICIDAL IDEATION [None]
  - ANGER [None]
  - ABNORMAL BEHAVIOUR [None]
  - SENSATION OF HEAVINESS [None]
